FAERS Safety Report 5871370-2 (Version None)
Quarter: 2008Q3

REPORT INFORMATION
  Report Type: 
  Country: None (occurrence: None)
  Receive Date: 20080905
  Receipt Date: 20080825
  Transmission Date: 20090109
  Serious: Yes (Other)
  Sender: FDA-Public Use
  Company Number: SE-BOEHRINGER INGELHEIM GMBH, GERMANY-2008-DE-04991GD

PATIENT

DRUGS (2)
  1. LANSOPRAZOLE [Suspect]
  2. RANITIDINE [Suspect]

REACTIONS (3)
  - LOWER RESPIRATORY TRACT INFECTION [None]
  - PNEUMONIA [None]
  - RESPIRATORY TRACT INFECTION [None]
